FAERS Safety Report 10851829 (Version 1)
Quarter: 2015Q1

REPORT INFORMATION
  Report Type: Spontaneous
  Country: US (occurrence: US)
  Receive Date: 20150222
  Receipt Date: 20150222
  Transmission Date: 20150721
  Serious: No
  Sender: FDA-Public Use
  Company Number: US-ALLERGAN-1412386US

PATIENT
  Age: 5 Year
  Sex: Male
  Weight: 17 kg

DRUGS (2)
  1. MIRALAX [Concomitant]
     Active Substance: POLYETHYLENE GLYCOL 3350
     Indication: LAXATIVE SUPPORTIVE CARE
     Dosage: UNK
  2. BOTOX [Suspect]
     Active Substance: ONABOTULINUMTOXINA
     Indication: MUSCLE SPASTICITY
     Dosage: 160 UNITS, SINGLE
     Route: 030
     Dates: start: 20140506, end: 20140506

REACTIONS (6)
  - Chromaturia [Recovered/Resolved]
  - Gastroenteritis [Unknown]
  - Glomerulonephritis [Unknown]
  - Dysuria [Recovered/Resolved]
  - Off label use [Unknown]
  - Protein urine present [Unknown]

NARRATIVE: CASE EVENT DATE: 20140526
